FAERS Safety Report 8053398 (Version 8)
Quarter: 2013Q1

REPORT INFORMATION
  Report Type: Spontaneous
  Country: US (occurrence: US)
  Receive Date: 20110725
  Receipt Date: 20130102
  Transmission Date: 20140127
  Serious: Yes (Hospitalization, Congenital Anomaly, Other)
  Sender: FDA-Public Use
  Company Number: US-PFIZER INC-2011159723

PATIENT
  Sex: Female
  Weight: 3 kg

DRUGS (26)
  1. ZOLOFT [Suspect]
     Indication: ANXIETY
     Dosage: UNK
     Route: 064
     Dates: start: 2004, end: 2010
  2. ZOLOFT [Suspect]
     Dosage: 100 MG, DAILY
     Route: 064
     Dates: start: 20050823
  3. ZOLOFT [Suspect]
     Dosage: 100 MG, DAILY
     Route: 064
     Dates: start: 20060203
  4. ZOLOFT [Suspect]
     Dosage: 150 MG, DAILY
     Route: 064
     Dates: start: 20060711
  5. MULTIVITAMINS [Concomitant]
     Dosage: UNK
     Route: 064
  6. KLONOPIN [Concomitant]
     Dosage: UNK
     Route: 064
  7. MONONESSA [Concomitant]
     Dosage: UNK
     Route: 064
  8. SPRINTEC [Concomitant]
     Dosage: UNK
     Route: 064
  9. PRECARE PRENATAL CARE [Concomitant]
     Dosage: UNK
     Route: 064
  10. ACETAMINOPHEN [Concomitant]
     Dosage: UNK
     Route: 064
  11. TYLENOL NO 3 [Concomitant]
     Dosage: UNK
     Route: 064
  12. TUMS [Concomitant]
     Dosage: UNK
     Route: 064
  13. AZITHROMYCIN [Concomitant]
     Dosage: UNK
     Route: 064
  14. AMBIEN [Concomitant]
     Dosage: UNK
     Route: 064
  15. IRON [Concomitant]
     Dosage: UNK
     Route: 064
  16. NITROFURANTOIN [Concomitant]
     Dosage: UNK
     Route: 064
  17. CIPRO [Concomitant]
     Dosage: UNK
     Route: 064
  18. AMOXICILLIN [Concomitant]
     Dosage: UNK
     Route: 064
  19. SUDAFED [Concomitant]
     Dosage: UNK
     Route: 064
  20. ALBUTEROL [Concomitant]
     Dosage: UNK
     Route: 064
  21. KAOPECTATE [Concomitant]
     Dosage: UNK
     Route: 064
  22. ADVIL [Concomitant]
     Dosage: UNK
     Route: 064
  23. AUGMENTIN [Concomitant]
     Dosage: UNK
     Route: 064
  24. LEVAQUIN [Concomitant]
     Dosage: UNK
     Route: 064
  25. BUTALBITAL/CAFFEINE/PARACETAMOL [Concomitant]
     Dosage: UNK
     Route: 064
  26. ROBITUSSIN [Concomitant]
     Dosage: UNK
     Route: 064

REACTIONS (24)
  - Maternal exposure timing unspecified [Unknown]
  - Atrial septal defect [Recovered/Resolved]
  - Heart disease congenital [Unknown]
  - Mitral valve stenosis [Recovering/Resolving]
  - Congenital aortic stenosis [Unknown]
  - Right atrial dilatation [Recovered/Resolved]
  - Dilatation ventricular [Recovered/Resolved]
  - Tricuspid valve incompetence [Unknown]
  - Pericardial effusion [Unknown]
  - Aortic valve incompetence [Unknown]
  - Ventricular septal defect [Recovered/Resolved]
  - Atrioventricular septal defect [Recovered/Resolved]
  - Pericardial effusion [Unknown]
  - Left ventricle outflow tract obstruction [Unknown]
  - Congenital mitral valve incompetence [Recovering/Resolving]
  - Tachypnoea [Recovered/Resolved]
  - Sinus arrhythmia [Unknown]
  - Upper respiratory tract infection [Recovered/Resolved]
  - Aortic valve incompetence [Unknown]
  - Atrioventricular block first degree [Unknown]
  - Left atrial dilatation [Unknown]
  - Left ventricular hypertrophy [Unknown]
  - Right ventricular hypertrophy [Unknown]
  - Congenital anomaly [Unknown]
